FAERS Safety Report 21675248 (Version 2)
Quarter: 2023Q1

REPORT INFORMATION
  Report Type: Spontaneous
  Country: US (occurrence: US)
  Receive Date: 20221202
  Receipt Date: 20230111
  Transmission Date: 20230418
  Serious: Yes (Death, Other)
  Sender: FDA-Public Use
  Company Number: US-BAYER-2022A162438

PATIENT
  Age: 37 Year
  Sex: Female

DRUGS (1)
  1. SKYLA [Suspect]
     Active Substance: LEVONORGESTREL
     Indication: Contraception
     Dosage: 14?G/DAY
     Route: 015
     Dates: start: 20221117

REACTIONS (5)
  - Toxic shock syndrome [Fatal]
  - Post procedural infection [Fatal]
  - Uterine perforation [None]
  - Suspected product contamination [None]
  - Complication of device insertion [None]

NARRATIVE: CASE EVENT DATE: 20221117
